FAERS Safety Report 5815998-4 (Version None)
Quarter: 2008Q3

REPORT INFORMATION
  Report Type: 
  Country: None (occurrence: None)
  Receive Date: 20080721
  Receipt Date: 20080711
  Transmission Date: 20090109
  Serious: Yes (Other)
  Sender: FDA-Public Use
  Company Number: PHHY2008BR14135

PATIENT
  Age: 80 Year
  Sex: Male

DRUGS (4)
  1. CODATEN [Suspect]
     Indication: PAIN
     Dosage: 50 MG, BID
     Route: 048
     Dates: start: 20080710
  2. CODATEN [Suspect]
     Dosage: 50 MG, QD
  3. GALVUS [Concomitant]
     Dosage: 50 MG, BID
     Route: 048
     Dates: start: 20080702
  4. ZELMAC [Concomitant]
     Dosage: 6 MG, BID
     Route: 048
     Dates: start: 20080702

REACTIONS (5)
  - ABNORMAL BEHAVIOUR [None]
  - ANAEMIA [None]
  - BLOOD URINE PRESENT [None]
  - HYPERTONIA [None]
  - SOMNOLENCE [None]
